FAERS Safety Report 17969798 (Version 1)
Quarter: 2020Q3

REPORT INFORMATION
  Report Type: Spontaneous
  Country: US (occurrence: US)
  Receive Date: 20200701
  Receipt Date: 20200701
  Transmission Date: 20201103
  Serious: Yes (Other)
  Sender: FDA-Public Use
  Company Number: US-AMGEN-USASP2020102275

PATIENT
  Age: 27 Year
  Sex: Female

DRUGS (1)
  1. BLINCYTO [Suspect]
     Active Substance: BLINATUMOMAB
     Indication: ACUTE LYMPHOCYTIC LEUKAEMIA RECURRENT
     Dosage: UNK
     Route: 065
     Dates: start: 201712

REACTIONS (6)
  - Pyrexia [Unknown]
  - Infection [Unknown]
  - Acute lymphocytic leukaemia recurrent [Unknown]
  - Scar [Unknown]
  - Dermatitis contact [Unknown]
  - Suture rupture [Unknown]

NARRATIVE: CASE EVENT DATE: 201712
